FAERS Safety Report 8376142-5 (Version None)
Quarter: 2012Q2

REPORT INFORMATION
  Report Type: 
  Country: None (occurrence: None)
  Receive Date: 20120522
  Receipt Date: 20120518
  Transmission Date: 20120825
  Serious: Yes (Other)
  Sender: FDA-Public Use
  Company Number: PHHY2012VE034221

PATIENT
  Age: 64 Year
  Sex: Female

DRUGS (3)
  1. SEBIVO [Suspect]
     Indication: HEPATITIS B
     Dosage: 600 MG, QD
     Route: 048
     Dates: end: 20120401
  2. GLYBURIDE [Concomitant]
     Dosage: 5 MG, QD
     Route: 048
  3. ARCALION [Concomitant]
     Dosage: 200 MG, QD
     Route: 048

REACTIONS (4)
  - MUSCULAR WEAKNESS [None]
  - PARKINSON'S DISEASE [None]
  - BALANCE DISORDER [None]
  - TREMOR [None]
